FAERS Safety Report 6211496-7 (Version None)
Quarter: 2009Q2

REPORT INFORMATION
  Report Type: 
  Country: None (occurrence: None)
  Receive Date: 20090602
  Receipt Date: 20090525
  Transmission Date: 20091009
  Serious: Yes (Hospitalization)
  Sender: FDA-Public Use
  Company Number: KR-AVENTIS-200915227GDDC

PATIENT
  Age: 47 Year
  Sex: Female

DRUGS (3)
  1. ARAVA [Suspect]
     Route: 048
  2. NSAID'S [Concomitant]
     Dosage: DOSE: UNK
  3. PREDNISOLONE [Concomitant]
     Dosage: DOSE: UNK

REACTIONS (3)
  - GAIT DISTURBANCE [None]
  - HYPOAESTHESIA [None]
  - MYELOPATHY [None]
